FAERS Safety Report 9462571 (Version 1)
Quarter: 2013Q3

REPORT INFORMATION
  Report Type: Other
  Country: GB (occurrence: GB)
  Receive Date: 20130816
  Receipt Date: 20130816
  Transmission Date: 20140515
  Serious: Yes (Other)
  Sender: FDA-Public Use
  Company Number: GB-BRISTOL-MYERS SQUIBB COMPANY-19198837

PATIENT
  Age: 47 Year
  Sex: Male

DRUGS (3)
  1. TRIAMCINOLONE ACE INJ 40 MG [Suspect]
  2. RITONAVIR [Interacting]
     Indication: HIV INFECTION
  3. HYDROCORTISONE [Concomitant]

REACTIONS (2)
  - Adrenal suppression [Recovered/Resolved]
  - Drug interaction [Unknown]
